FAERS Safety Report 25558388 (Version 1)
Quarter: 2025Q3

REPORT INFORMATION
  Report Type: Spontaneous
  Country: US (occurrence: US)
  Receive Date: 20250715
  Receipt Date: 20250715
  Transmission Date: 20251020
  Serious: No
  Sender: INTRABIO
  Company Number: US-IBO-202400063

PATIENT
  Age: 21 Year
  Sex: Male
  Weight: 51 kg

DRUGS (7)
  1. TRAZODONE [Concomitant]
     Active Substance: TRAZODONE HYDROCHLORIDE
     Indication: Product used for unknown indication
     Route: 065
  2. RISPERIDONE [Concomitant]
     Active Substance: RISPERIDONE
     Indication: Product used for unknown indication
     Route: 065
  3. Lotrimin [Concomitant]
     Indication: Product used for unknown indication
     Route: 065
  4. LAMICTAL [Concomitant]
     Active Substance: LAMOTRIGINE
     Indication: Product used for unknown indication
     Route: 065
  5. CLONAZEPAM [Concomitant]
     Active Substance: CLONAZEPAM
     Indication: Product used for unknown indication
     Route: 065
  6. AQNEURSA [Suspect]
     Active Substance: LEVACETYLLEUCINE
     Indication: Niemann-Pick disease
     Route: 065
     Dates: start: 20250609
  7. AQNEURSA [Suspect]
     Active Substance: LEVACETYLLEUCINE
     Indication: Niemann-Pick disease
     Route: 065
     Dates: start: 20241015, end: 20250511

REACTIONS (5)
  - Insomnia [Recovering/Resolving]
  - Influenza [Recovering/Resolving]
  - Restlessness [Unknown]
  - Abdominal discomfort [Unknown]
  - Sleep apnoea syndrome [Not Recovered/Not Resolved]
